FAERS Safety Report 12952622 (Version 1)
Quarter: 2016Q4

REPORT INFORMATION
  Report Type: Report from Study
  Country: BR (occurrence: BR)
  Receive Date: 20161117
  Receipt Date: 20161117
  Transmission Date: 20170207
  Serious: Yes (Other)
  Sender: FDA-Public Use
  Company Number: PHHY2016BR156249

PATIENT
  Age: 50 Year
  Sex: Female

DRUGS (3)
  1. VITALUX PLUS LUTEIN OMEGA 3 [Suspect]
     Active Substance: MINERALS\VITAMINS
     Indication: PRODUCT USED FOR UNKNOWN INDICATION
     Dosage: QD
     Route: 048
     Dates: start: 20161109
  2. FORASEQ [Suspect]
     Active Substance: BUDESONIDE\FORMOTEROL FUMARATE
     Indication: BRONCHITIS
     Dosage: 1 DF (FORMOTEROL FUMARATE 12 UG, BUDESONIDE 400 UG),
     Route: 055
  3. FORASEQ [Suspect]
     Active Substance: BUDESONIDE\FORMOTEROL FUMARATE
     Indication: DYSPNOEA

REACTIONS (13)
  - Aphthous ulcer [Unknown]
  - Crying [Unknown]
  - Asthenia [Recovering/Resolving]
  - Oral candidiasis [Unknown]
  - Agitation [Unknown]
  - Dizziness [Unknown]
  - Pruritus [Recovering/Resolving]
  - Anaemia [Recovering/Resolving]
  - Device damage [Unknown]
  - Dyspnoea [Unknown]
  - Eye pruritus [Unknown]
  - Hypersomnia [Unknown]
  - Anxiety [Unknown]

NARRATIVE: CASE EVENT DATE: 20161106
